FAERS Safety Report 6856571-9 (Version None)
Quarter: 2010Q3

REPORT INFORMATION
  Report Type: 
  Country: None (occurrence: None)
  Receive Date: 20100716
  Receipt Date: 20100716
  Transmission Date: 20110219
  Serious: Yes (Life-Threatening, Hospitalization)
  Sender: FDA-Public Use
  Company Number: None

PATIENT
  Sex: Female

DRUGS (1)
  1. GEMTUZUMAB OZOGAMICIN 5 MG/ML [Suspect]
     Indication: ACUTE MYELOID LEUKAEMIA
     Dosage: 5.67MG X 1 IV
     Route: 042
     Dates: start: 20100513, end: 20100513

REACTIONS (7)
  - ACUTE MYOCARDIAL INFARCTION [None]
  - CHILLS [None]
  - HYPOTENSION [None]
  - INFUSION RELATED REACTION [None]
  - PULMONARY OEDEMA [None]
  - RESPIRATORY DISTRESS [None]
  - URINE OUTPUT DECREASED [None]
